FAERS Safety Report 7781825-1 (Version None)
Quarter: 2011Q3

REPORT INFORMATION
  Report Type: 
  Country: None (occurrence: None)
  Receive Date: 20110927
  Receipt Date: 20110923
  Transmission Date: 20111222
  Serious: Yes (Hospitalization, Other)
  Sender: FDA-Public Use
  Company Number: US-ABBOTT-11P-163-0850351-00

PATIENT
  Sex: Male

DRUGS (4)
  1. ACTONEL [Concomitant]
     Indication: OSTEOPOROSIS
  2. ZANTAC [Concomitant]
     Indication: DYSPEPSIA
  3. HUMIRA [Suspect]
     Indication: RHEUMATOID ARTHRITIS
     Route: 058
     Dates: start: 20030101, end: 20100401
  4. PLAQUENIL [Concomitant]
     Indication: RHEUMATOID ARTHRITIS

REACTIONS (3)
  - RESPIRATORY TRACT INFECTION BACTERIAL [None]
  - HAEMOPTYSIS [None]
  - PNEUMOCONIOSIS [None]
